FAERS Safety Report 5057142-X (Version None)
Quarter: 2006Q2

REPORT INFORMATION
  Report Type: 
  Country: None (occurrence: None)
  Receive Date: 20060622
  Receipt Date: 20050916
  Transmission Date: 20061013
  Serious: Yes (Other)
  Sender: FDA-Public Use
  Company Number: US-JNJFOC-20050905070

PATIENT
  Age: 46 Year
  Sex: Male

DRUGS (6)
  1. DURAGESIC-100 [Suspect]
     Indication: PAIN
     Dosage: 100 UG/HR, 1 IN 72 HOUR, TRANSDERMAL
     Route: 062
     Dates: start: 20050501, end: 20050816
  2. OXYCONTIN (OXYCODONE HYDROCHLORIDE) TABLETS [Concomitant]
  3. NEURONTIN [Concomitant]
  4. ULTRAM [Concomitant]
  5. XANAX [Concomitant]
  6. WELLBUTRIN [Concomitant]

REACTIONS (4)
  - HEADACHE [None]
  - LACRIMATION INCREASED [None]
  - LOSS OF CONSCIOUSNESS [None]
  - RESPIRATORY DEPRESSION [None]
